FAERS Safety Report 22324193 (Version 2)
Quarter: 2023Q2

REPORT INFORMATION
  Report Type: Report from Study
  Country: US (occurrence: US)
  Receive Date: 20230516
  Receipt Date: 20230620
  Transmission Date: 20230721
  Serious: Yes (Hospitalization, Other)
  Sender: FDA-Public Use
  Company Number: US-TAKEDA-2023TUS038685

PATIENT
  Sex: Male

DRUGS (3)
  1. MARIBAVIR [Suspect]
     Active Substance: MARIBAVIR
     Indication: Cytomegalovirus infection
     Dosage: 2 DOSAGE FORM, BID
     Route: 048
     Dates: start: 20230418, end: 20230531
  2. MARIBAVIR [Suspect]
     Active Substance: MARIBAVIR
     Dosage: UNK, BID
     Route: 048
     Dates: start: 20230330
  3. MUCINEX [Suspect]
     Active Substance: GUAIFENESIN
     Indication: Product used for unknown indication
     Dosage: UNK
     Route: 065

REACTIONS (5)
  - Orthostatic hypotension [Unknown]
  - Hypotension [Unknown]
  - Escherichia bacteraemia [Unknown]
  - Pyrexia [Unknown]
  - Productive cough [Unknown]
